FAERS Safety Report 20546204 (Version 1)
Quarter: 2022Q1

REPORT INFORMATION
  Report Type: Spontaneous
  Country: US (occurrence: US)
  Receive Date: 20220303
  Receipt Date: 20220303
  Transmission Date: 20220423
  Serious: Yes (Other)
  Sender: FDA-Public Use
  Company Number: US-GLAXOSMITHKLINE-US2022GSK037728

PATIENT
  Sex: Male

DRUGS (2)
  1. ZANTAC [Suspect]
     Active Substance: RANITIDINE HYDROCHLORIDE
     Indication: Sinus disorder
     Dosage: UNKNOWN AT THIS TIME, WE
     Route: 065
     Dates: start: 200001, end: 200612
  2. ZANTAC [Suspect]
     Active Substance: RANITIDINE HYDROCHLORIDE
     Indication: Sinus disorder
     Dosage: UNKNOWN AT THIS TIME, WE
     Route: 065
     Dates: start: 200001, end: 200612

REACTIONS (1)
  - Prostate cancer [Unknown]
